FAERS Safety Report 10436247 (Version 1)
Quarter: 2014Q3

REPORT INFORMATION
  Report Type: Report from Study
  Country: BR (occurrence: BR)
  Receive Date: 20140908
  Receipt Date: 20140908
  Transmission Date: 20150326
  Serious: Yes (Hospitalization, Disabling, Other)
  Sender: FDA-Public Use
  Company Number: BR-ABBVIE-14K-020-1278137-00

PATIENT
  Sex: Female
  Weight: 50 kg

DRUGS (6)
  1. RIVOTRIL [Concomitant]
     Active Substance: CLONAZEPAM
     Indication: INSOMNIA
     Dosage: ONCE A DAY
     Route: 048
     Dates: start: 2005
  2. HUMIRA [Suspect]
     Active Substance: ADALIMUMAB
     Indication: ANKYLOSING SPONDYLITIS
     Route: 058
     Dates: start: 201209
  3. CERAZETTE [Concomitant]
     Active Substance: DESOGESTREL
     Indication: ENDOMETRIOSIS
     Dosage: ONCE A DAY
     Route: 048
     Dates: start: 2007
  4. UNSPECIFIED CORTICOID [Suspect]
     Active Substance: UNSPECIFIED INGREDIENT
     Indication: PAIN
     Route: 050
  5. FRONTAL [Concomitant]
     Active Substance: ALPRAZOLAM
     Indication: ANXIETY DISORDER
     Route: 048
     Dates: start: 201403
  6. MELOXICAM. [Concomitant]
     Active Substance: MELOXICAM
     Indication: ANKYLOSING SPONDYLITIS
     Dosage: ONCE A DAY
     Route: 048
     Dates: start: 20140825

REACTIONS (10)
  - Fibromyalgia [Recovering/Resolving]
  - Tachycardia [Recovering/Resolving]
  - Mitral valve incompetence [Unknown]
  - Blood cholesterol increased [Recovering/Resolving]
  - Drug ineffective [Unknown]
  - Ulcer [Recovering/Resolving]
  - Adrenal insufficiency [Recovered/Resolved]
  - Mitral valve prolapse [Unknown]
  - Nodule [Not Recovered/Not Resolved]
  - Gastritis [Recovering/Resolving]

NARRATIVE: CASE EVENT DATE: 2013
